FAERS Safety Report 4528344-3 (Version None)
Quarter: 2004Q4

REPORT INFORMATION
  Report Type: 
  Country: None (occurrence: None)
  Receive Date: 20041130
  Receipt Date: 20040426
  Transmission Date: 20050328
  Serious: Yes (Other)
  Sender: FDA-Public Use
  Company Number: WAES 0404USA02268

PATIENT
  Age: 55 Year
  Sex: Female
  Weight: 46.2669 kg

DRUGS (6)
  1. FOSAMAX [Suspect]
     Indication: OSTEOPOROSIS
     Dosage: 70 MG/WKY/PO
     Route: 048
     Dates: start: 20010101, end: 20040308
  2. TAB DOXYCYCLINE 200 MG [Suspect]
     Dosage: 200 MG/DAILY/PO
     Route: 048
     Dates: end: 20040308
  3. FLONASE [Concomitant]
  4. PARLODEL [Concomitant]
  5. SYNTHROID [Concomitant]
  6. CALCIUM GLUCONATE [Concomitant]

REACTIONS (3)
  - ODYNOPHAGIA [None]
  - OESOPHAGITIS [None]
  - SENSATION OF FOREIGN BODY [None]
